FAERS Safety Report 21159517 (Version 1)
Quarter: 2022Q3

REPORT INFORMATION
  Report Type: Spontaneous
  Country: CA (occurrence: CA)
  Receive Date: 20220802
  Receipt Date: 20220802
  Transmission Date: 20221027
  Serious: Yes (Death, Life-Threatening, Hospitalization, Other)
  Sender: FDA-Public Use
  Company Number: CA-BAXTER-2022BAX015876

PATIENT
  Age: 69 Year
  Sex: Female
  Weight: 75 kg

DRUGS (27)
  1. CYCLOPHOSPHAMIDE [Suspect]
     Active Substance: CYCLOPHOSPHAMIDE
     Indication: Mesothelioma malignant
     Dosage: DOSAGE FORM- NOT SPECIFIED, 1140 MG
     Route: 065
  2. CYCLOPHOSPHAMIDE [Suspect]
     Active Substance: CYCLOPHOSPHAMIDE
     Indication: Mesothelioma
     Dosage: DOSAGE FORM- INTRAVENOUS INFUSION, 1140 MG
     Route: 065
  3. CYCLOPHOSPHAMIDE [Suspect]
     Active Substance: CYCLOPHOSPHAMIDE
     Dosage: DOSAGE FORM- INTRAVENOUS INFUSION
     Route: 065
  4. FLUDARABINE [Suspect]
     Active Substance: FLUDARABINE PHOSPHATE
     Indication: Mesothelioma
     Dosage: DOSAGE FORM- INTRAVENOUS INFUSION, 38 MG
     Route: 065
  5. FLUDARABINE [Suspect]
     Active Substance: FLUDARABINE PHOSPHATE
     Dosage: 38 MG
     Route: 065
  6. ACETAMINOPHEN [Concomitant]
     Active Substance: ACETAMINOPHEN
     Indication: Product used for unknown indication
     Dosage: DOSAGE FORM- NOT SPECIFIED
     Route: 065
  7. AMITRIPTYLINE [Concomitant]
     Active Substance: AMITRIPTYLINE
     Indication: Product used for unknown indication
     Dosage: UNK
     Route: 065
  8. ANAKINRA [Concomitant]
     Active Substance: ANAKINRA
     Indication: Product used for unknown indication
     Dosage: UNK
     Route: 065
  9. DIMENHYDRINATE [Concomitant]
     Active Substance: DIMENHYDRINATE
     Indication: Product used for unknown indication
     Dosage: DOSAGE FORM- NOT SPECIFIED
     Route: 065
  10. FENTANYL [Concomitant]
     Active Substance: FENTANYL
     Indication: Respiratory distress
     Dosage: DOSAGE FORM- NOT SPECIFIED
     Route: 065
  11. FESOTERODINE FUMARATE [Concomitant]
     Active Substance: FESOTERODINE FUMARATE
     Indication: Product used for unknown indication
     Dosage: UNK
     Route: 065
  12. FLUCONAZOLE [Concomitant]
     Active Substance: FLUCONAZOLE
     Indication: Product used for unknown indication
     Dosage: DOSAGE FORM- NOT SPECIFIED
     Route: 065
  13. FUROSEMIDE [Concomitant]
     Active Substance: FUROSEMIDE
     Indication: Pleural effusion
     Dosage: DOSAGE FORM- NOT SPECIFIED
     Route: 065
  14. HEPARIN SODIUM [Concomitant]
     Active Substance: HEPARIN SODIUM
     Indication: Product used for unknown indication
     Dosage: UNK
     Route: 065
  15. SCOPOLAMINE [Concomitant]
     Active Substance: SCOPOLAMINE
     Indication: Secretion discharge
     Dosage: UNK
     Route: 065
  16. HUMAN IMMUNOGLOBULIN G [Concomitant]
     Active Substance: HUMAN IMMUNOGLOBULIN G
     Indication: Product used for unknown indication
     Dosage: IMMUNOGLOBULIN (IVIG, 1 EVERY 1 DAYS
     Route: 065
  17. LIDOCAINE;NYSTATIN [Concomitant]
     Indication: Product used for unknown indication
     Dosage: UNK
     Route: 065
  18. LEVOMEPROMAZINE [Concomitant]
     Active Substance: LEVOMEPROMAZINE
     Indication: Agitation
     Dosage: DOSAGE FORM- NOT SPECIFIED
     Route: 065
  19. METHYLPREDNISOLONE [Concomitant]
     Active Substance: METHYLPREDNISOLONE
     Indication: Product used for unknown indication
     Dosage: INTRAVENOUS (NOT OTHERWISE SPECIFIED), 150 MG, 1 EVERY 1 DAYS
     Route: 042
  20. METHYLPREDNISOLONE [Concomitant]
     Active Substance: METHYLPREDNISOLONE
     Dosage: 80 MG, 1 EVERY 1 DAYS
     Route: 065
  21. MIDAZOLAM [Concomitant]
     Active Substance: MIDAZOLAM
     Indication: Dyspnoea
     Dosage: UNK
     Route: 065
  22. SODIUM CHLORIDE [Concomitant]
     Active Substance: SODIUM CHLORIDE
     Indication: Product used for unknown indication
     Dosage: DOSAGE FORM- NOT SPECIFIED
     Route: 065
  23. OLANZAPINE [Concomitant]
     Active Substance: OLANZAPINE
     Indication: Product used for unknown indication
     Dosage: DOSAGE FORM- NOT SPECIFIED
     Route: 065
  24. PIPERACILLIN SODIUM\TAZOBACTAM SODIUM [Concomitant]
     Active Substance: PIPERACILLIN SODIUM\TAZOBACTAM SODIUM
     Indication: Product used for unknown indication
     Dosage: UNK
     Route: 065
  25. ROSUVASTATIN [Concomitant]
     Active Substance: ROSUVASTATIN
     Indication: Product used for unknown indication
     Dosage: DOSAGE FORM- NOT SPECIFIED
     Route: 058
  26. SODIUM BICARBONATE [Concomitant]
     Active Substance: SODIUM BICARBONATE
     Indication: Product used for unknown indication
     Dosage: DOSAGE FORM- NOT SPECIFIED
     Route: 065
  27. VALACYCLOVIR [Concomitant]
     Active Substance: VALACYCLOVIR HYDROCHLORIDE
     Indication: Product used for unknown indication
     Dosage: DOSAGE FORM- NOT SPECIFIED
     Route: 065

REACTIONS (11)
  - Tachypnoea [Fatal]
  - Hallucination, visual [Fatal]
  - Cytokine release syndrome [Fatal]
  - Thrombocytopenia [Fatal]
  - Pyrexia [Fatal]
  - Pulmonary oedema [Fatal]
  - Pneumonitis [Fatal]
  - Hypoxia [Fatal]
  - Hypotension [Fatal]
  - Dyspnoea [Fatal]
  - Anaemia [Fatal]
